FAERS Safety Report 9285164 (Version 2)
Quarter: 2013Q2

REPORT INFORMATION
  Report Type: Spontaneous
  Country: AR (occurrence: AR)
  Receive Date: 20130513
  Receipt Date: 20130530
  Transmission Date: 20140414
  Serious: Yes (Hospitalization, Other)
  Sender: FDA-Public Use
  Company Number: AR-009507513-1305ARG003274

PATIENT
  Sex: Female

DRUGS (3)
  1. VICTRELIS [Suspect]
     Indication: HEPATITIS C
     Dosage: 800 MG, Q8H
     Route: 048
     Dates: start: 20130411, end: 20130502
  2. INTERFERON ALFA-2B [Suspect]
     Dosage: UNK
     Route: 065
     Dates: start: 201303, end: 20130502
  3. RIBAVIRIN [Suspect]
     Dosage: UNK
     Route: 065
     Dates: start: 201303, end: 20130502

REACTIONS (10)
  - Loss of consciousness [Recovered/Resolved]
  - Dyspnoea [Recovered/Resolved]
  - Pyrexia [Recovered/Resolved]
  - Anaemia [Recovering/Resolving]
  - Dysgeusia [Recovered/Resolved]
  - Stomatitis [Recovered/Resolved]
  - Oral mucosal blistering [Recovered/Resolved]
  - Eye disorder [Recovered/Resolved]
  - Nail discolouration [Recovered/Resolved]
  - Eating disorder [Unknown]
